FAERS Safety Report 7808145-0 (Version None)
Quarter: 2011Q4

REPORT INFORMATION
  Report Type: 
  Country: None (occurrence: None)
  Receive Date: 20111011
  Receipt Date: 20111010
  Transmission Date: 20120403
  Serious: Yes (Hospitalization, Other)
  Sender: FDA-Public Use
  Company Number: BR-ABBOTT-08P-020-0492611-00

PATIENT
  Sex: Female
  Weight: 45 kg

DRUGS (21)
  1. DIUREMIDA [Concomitant]
     Indication: HYPERTENSION
  2. CAPTOPRIL [Concomitant]
     Indication: HYPERTENSION
     Route: 048
  3. TRAZODONE HYDROCHLORIDE [Concomitant]
     Indication: SLEEP DISORDER THERAPY
     Route: 048
  4. SPIRONOLACTONE [Concomitant]
     Indication: HYPERTENSION
     Route: 048
  5. HUMIRA [Suspect]
     Dates: start: 20100101
  6. DIUREMIDA [Concomitant]
     Indication: SWELLING
  7. CARBAMAZEPINE [Concomitant]
     Indication: EPILEPSY
     Route: 048
     Dates: start: 19980101
  8. DULCOLAX [Concomitant]
     Indication: GASTROINTESTINAL DISORDER
     Route: 048
     Dates: start: 20040101
  9. DIUREMIDA [Concomitant]
     Indication: CARDIAC DISORDER
     Route: 048
  10. CLEZAC [Concomitant]
     Indication: PRODUCT USED FOR UNKNOWN INDICATION
  11. CARBAMAZEPINE [Concomitant]
     Indication: CARDIAC DISORDER
  12. ASPIRIN [Concomitant]
     Indication: CARDIAC DISORDER
     Route: 048
  13. CIPROFLOXACIN [Concomitant]
     Indication: ANTIBIOTIC PROPHYLAXIS
  14. SPIRONOLACTONE [Concomitant]
     Indication: CARDIAC DISORDER
  15. DESOGESTREL [Concomitant]
     Indication: CARDIAC DISORDER
     Route: 048
     Dates: start: 20000101
  16. SIMVASTATIN [Concomitant]
     Indication: BLOOD CHOLESTEROL
     Route: 048
  17. METOPROLOL SUCCINATE [Concomitant]
     Indication: HYPERTENSION
     Route: 048
  18. HUMIRA [Suspect]
     Indication: RHEUMATOID ARTHRITIS
     Route: 058
     Dates: start: 20081013, end: 20100601
  19. ASPIRIN [Concomitant]
     Indication: ANTICOAGULANT THERAPY
     Route: 048
     Dates: start: 20000101
  20. CARBAMAZEPINE [Concomitant]
     Indication: CONVULSION
  21. HYDROCHLOROTHIAZIDE [Concomitant]
     Indication: CARDIAC DISORDER
     Route: 048
     Dates: start: 20000101

REACTIONS (24)
  - MALAISE [None]
  - MOBILITY DECREASED [None]
  - AMERICAN TRYPANOSOMIASIS [None]
  - FALL [None]
  - PAIN [None]
  - BLOOD CHOLESTEROL ABNORMAL [None]
  - MASS [None]
  - DIZZINESS [None]
  - GAIT DISTURBANCE [None]
  - BALANCE DISORDER [None]
  - BLOOD SODIUM DECREASED [None]
  - ASTHENIA [None]
  - MEMORY IMPAIRMENT [None]
  - DYSSTASIA [None]
  - NERVOUS SYSTEM DISORDER [None]
  - BONE PAIN [None]
  - TREMOR [None]
  - INSOMNIA [None]
  - VOLVULUS [None]
  - EPILEPSY [None]
  - CONSTIPATION [None]
  - ERYTHEMA [None]
  - PAIN IN EXTREMITY [None]
  - COORDINATION ABNORMAL [None]
